FAERS Safety Report 6752524-X (Version None)
Quarter: 2010Q2

REPORT INFORMATION
  Report Type: 
  Country: None (occurrence: None)
  Receive Date: 20100528
  Receipt Date: 20100517
  Transmission Date: 20101027
  Serious: Yes (Other)
  Sender: FDA-Public Use
  Company Number: 596469

PATIENT
  Age: 29 Year
  Sex: Female

DRUGS (3)
  1. PROPOFOL [Suspect]
     Indication: INDUCTION OF ANAESTHESIA
     Dosage: 120 MG MILLIGRAM (S), INTRAVENOUS
     Route: 042
  2. FENTANYL CITRATE [Concomitant]
  3. NITROUS (OXIDE) [Concomitant]

REACTIONS (3)
  - ABNORMAL BEHAVIOUR [None]
  - AGGRESSION [None]
  - PSYCHOTIC DISORDER [None]
